FAERS Safety Report 25135508 (Version 1)
Quarter: 2025Q1

REPORT INFORMATION
  Report Type: Spontaneous
  Country: US (occurrence: US)
  Receive Date: 20250328
  Receipt Date: 20250328
  Transmission Date: 20250409
  Serious: No
  Sender: PADAGIS
  Company Number: US-PADAGIS-2025PAD00330

PATIENT

DRUGS (2)
  1. MUPIROCIN [Suspect]
     Active Substance: MUPIROCIN
     Indication: Lip scab
     Route: 065
     Dates: start: 20250311, end: 20250318
  2. MUPIROCIN [Suspect]
     Active Substance: MUPIROCIN
     Route: 045
     Dates: start: 20250320

REACTIONS (4)
  - Application site vesicles [Recovered/Resolved]
  - Application site discolouration [Unknown]
  - Therapy partial responder [Unknown]
  - Product use in unapproved indication [Unknown]

NARRATIVE: CASE EVENT DATE: 20250311
